FAERS Safety Report 10730902 (Version 3)
Quarter: 2015Q2

REPORT INFORMATION
  Report Type: Spontaneous
  Country: AT (occurrence: AT)
  Receive Date: 20150122
  Receipt Date: 20150506
  Transmission Date: 20150821
  Serious: Yes (Death, Hospitalization, Other)
  Sender: FDA-Public Use
  Company Number: AT-ABBVIE-14P-009-1326687-00

PATIENT
  Age: 73 Year
  Sex: Female
  Weight: 80 kg

DRUGS (20)
  1. PK MERZ [Suspect]
     Active Substance: AMANTADINE SULFATE
     Indication: PRODUCT USED FOR UNKNOWN INDICATION
     Dosage: MORNING AND NOON
     Route: 065
  2. VENDAL [Concomitant]
     Indication: DYSPNOEA
     Dosage: HALF OF AN AMPULLE WHEN DYSPNEA, MAX. 3 PER DAY
  3. PANTOLOC [Concomitant]
     Active Substance: PANTOPRAZOLE SODIUM
     Dosage: MORNINGS AND EVENINGS
  4. SEROQUEL [Concomitant]
     Active Substance: QUETIAPINE FUMARATE
     Indication: PRODUCT USED FOR UNKNOWN INDICATION
     Dosage: 0.5 TAB NOON, 0.5 TAB EVENINGS
  5. AMANTADIN [Concomitant]
     Active Substance: AMANTADINE
     Indication: PRODUCT USED FOR UNKNOWN INDICATION
     Dosage: MORNINGS AND NOON
  6. HYDAL [Concomitant]
     Active Substance: HYDROMORPHONE HYDROCHLORIDE
     Indication: PRODUCT USED FOR UNKNOWN INDICATION
  7. LOVENOX [Concomitant]
     Active Substance: ENOXAPARIN SODIUM
     Indication: PRODUCT USED FOR UNKNOWN INDICATION
  8. MEXALEN [Concomitant]
     Active Substance: LUBIPROSTONE
     Indication: PAIN
     Dosage: 3 PER DAY WHEN PAIN
  9. DUODOPA [Suspect]
     Active Substance: CARBIDOPA\LEVODOPA
     Indication: PARKINSON^S DISEASE
     Dosage: BOLUS 9 ML; 6:00 - 22:00 - CONT 2ML/H, THEN PAUSE
     Route: 050
     Dates: start: 20140903, end: 20141228
  10. SIMVATIN [Concomitant]
     Indication: PRODUCT USED FOR UNKNOWN INDICATION
     Dosage: EVENINGS
  11. ACTIFERRINE [Concomitant]
     Indication: PRODUCT USED FOR UNKNOWN INDICATION
     Dosage: MORNINGS
  12. SIFROL [Suspect]
     Active Substance: PRAMIPEXOLE
     Indication: PRODUCT USED FOR UNKNOWN INDICATION
     Dosage: MORNINGS
     Route: 065
  13. SEROQUEL [Concomitant]
     Active Substance: QUETIAPINE FUMARATE
     Dosage: 0.5 TAB NOON, 0.5 TAB EVENINGS
  14. MOVICOL [Concomitant]
     Active Substance: POLYETHYLENE GLYCOL 3350\POTASSIUM CHLORIDE\SODIUM BICARBONATE\SODIUM CHLORIDE
     Indication: PRODUCT USED FOR UNKNOWN INDICATION
  15. PANTOLOC [Concomitant]
     Active Substance: PANTOPRAZOLE SODIUM
     Indication: PRODUCT USED FOR UNKNOWN INDICATION
     Dosage: MORNINGS
  16. ACEMIN [Concomitant]
     Active Substance: LISINOPRIL
     Indication: PRODUCT USED FOR UNKNOWN INDICATION
     Dosage: MORNINGS
  17. XARELTO [Concomitant]
     Active Substance: RIVAROXABAN
     Indication: PRODUCT USED FOR UNKNOWN INDICATION
     Dosage: MORNINGS
  18. LISINOPRIL. [Concomitant]
     Active Substance: LISINOPRIL
     Indication: PRODUCT USED FOR UNKNOWN INDICATION
  19. LASIX [Concomitant]
     Active Substance: FUROSEMIDE
     Indication: PRODUCT USED FOR UNKNOWN INDICATION
  20. NOVALGIN [Concomitant]
     Active Substance: METAMIZOLE SODIUM
     Indication: PRODUCT USED FOR UNKNOWN INDICATION
     Dosage: 20 DROPS 3 TIMES PER DAY

REACTIONS (24)
  - Fall [Fatal]
  - Bradycardia [Fatal]
  - Loss of consciousness [Unknown]
  - Mobility decreased [Unknown]
  - Computerised tomogram head abnormal [Unknown]
  - Atrioventricular block complete [Fatal]
  - Pallor [Unknown]
  - Fear [Unknown]
  - Hyperkinesia [Unknown]
  - Sudden death [Fatal]
  - Gastric ulcer [Fatal]
  - Arrhythmia [Unknown]
  - Spinal pain [Unknown]
  - Syncope [Fatal]
  - Malaise [Unknown]
  - General physical health deterioration [Unknown]
  - Aphasia [Unknown]
  - Syncope [Unknown]
  - Obesity [Unknown]
  - Head injury [Unknown]
  - Pulse absent [Unknown]
  - Arthralgia [Unknown]
  - Bradycardia [Unknown]
  - Cold sweat [Unknown]

NARRATIVE: CASE EVENT DATE: 20141216
